FAERS Safety Report 16481504 (Version 2)
Quarter: 2019Q3

REPORT INFORMATION
  Report Type: Spontaneous
  Country: IT (occurrence: IT)
  Receive Date: 20190627
  Receipt Date: 20190726
  Transmission Date: 20191004
  Serious: Yes (Other)
  Sender: FDA-Public Use
  Company Number: IT-AMGEN-ITASP2019099640

PATIENT
  Age: 23 Year
  Sex: Male
  Weight: 72 kg

DRUGS (3)
  1. MESAVANCOL [Concomitant]
     Active Substance: MESALAMINE
     Dosage: 2400 MILLIGRAM, QD
  2. AMGEVITA [Suspect]
     Active Substance: ADALIMUMAB
     Indication: COLITIS ULCERATIVE
     Dosage: 40 MILLIGRAM, QWK
     Route: 058
     Dates: start: 20190110, end: 20190603
  3. AZAFOR [Concomitant]
     Dosage: 100 MILLIGRAM, QD

REACTIONS (4)
  - Colitis ulcerative [Not Recovered/Not Resolved]
  - Drug ineffective [Not Recovered/Not Resolved]
  - Disease recurrence [Not Recovered/Not Resolved]
  - Product substitution issue [Not Recovered/Not Resolved]

NARRATIVE: CASE EVENT DATE: 20190110
